FAERS Safety Report 5524829-1 (Version None)
Quarter: 2007Q4

REPORT INFORMATION
  Report Type: 
  Country: None (occurrence: None)
  Receive Date: 20071126
  Receipt Date: 20071116
  Transmission Date: 20080405
  Serious: Yes (Other)
  Sender: FDA-Public Use
  Company Number: PHBS2007ES19309

PATIENT
  Age: 58 Year
  Sex: Female

DRUGS (1)
  1. CO-VALS [Suspect]
     Indication: HYPERTENSION

REACTIONS (6)
  - ABDOMINAL PAIN [None]
  - DRUG HYPERSENSITIVITY [None]
  - ERYTHEMA [None]
  - NAUSEA [None]
  - TONGUE GEOGRAPHIC [None]
  - VOMITING [None]
